FAERS Safety Report 9238861 (Version 1)
Quarter: 2013Q2

REPORT INFORMATION
  Report Type: Not Available
  Country: CN (occurrence: CN)
  Receive Date: 20130418
  Receipt Date: 20130418
  Transmission Date: 20140414
  Serious: Yes (Hospitalization, Other)
  Sender: FDA-Public Use
  Company Number: CN-ASTELLAS-2013JP005076

PATIENT
  Sex: Female
  Weight: 63 kg

DRUGS (7)
  1. TACROLIMUS [Suspect]
     Indication: RENAL TRANSPLANT
     Dosage: 1.50 MG, BID
     Route: 048
     Dates: start: 20070302, end: 20121011
  2. MYCOPHENOLATE MOFETIL [Concomitant]
     Dosage: UNK
     Route: 048
     Dates: start: 20070201
  3. MYCOPHENOLATE MOFETIL [Concomitant]
     Dosage: 500 MG, BID
     Route: 048
  4. SANDIMMUN NEORAL [Concomitant]
     Dosage: UNK
     Route: 048
     Dates: start: 20070201
  5. METHYLPREDNISOLONE [Concomitant]
     Dosage: UNK
     Route: 048
     Dates: start: 20070201
  6. CORBRIN [Concomitant]
     Dosage: UNK
     Route: 048
     Dates: start: 20070201
  7. ROCALTROL [Concomitant]
     Dosage: UNK
     Route: 048
     Dates: start: 20070201

REACTIONS (9)
  - Blood creatinine increased [Not Recovered/Not Resolved]
  - Lung infection [Not Recovered/Not Resolved]
  - Genitourinary tract infection [Not Recovered/Not Resolved]
  - Influenza like illness [Not Recovered/Not Resolved]
  - Transaminases abnormal [Not Recovered/Not Resolved]
  - Immunosuppressant drug level increased [Not Recovered/Not Resolved]
  - Contusion [Not Recovered/Not Resolved]
  - Contusion [Not Recovered/Not Resolved]
  - Kyphosis [Not Recovered/Not Resolved]
